FAERS Safety Report 4308458-3 (Version None)
Quarter: 2004Q1

REPORT INFORMATION
  Report Type: 
  Country: None (occurrence: None)
  Receive Date: 20040301
  Receipt Date: 20040202
  Transmission Date: 20041129
  Serious: Yes (Other)
  Sender: FDA-Public Use
  Company Number: JP-ROCHE-358088

PATIENT
  Age: 49 Year
  Sex: Male

DRUGS (6)
  1. TAMIFLU [Suspect]
     Route: 048
     Dates: start: 20040202, end: 20040206
  2. LOXONIN [Concomitant]
     Route: 048
     Dates: start: 20040202, end: 20040206
  3. DIPYRIDAMOLE [Concomitant]
     Route: 048
     Dates: start: 20040202, end: 20040206
  4. DASEN [Concomitant]
     Route: 048
     Dates: start: 20040202, end: 20040206
  5. DIHYDROCODEINE BITARTRATE INJ [Concomitant]
     Route: 048
     Dates: start: 20040202, end: 20040205
  6. HOKUNALIN [Concomitant]
     Route: 048
     Dates: start: 20040202, end: 20040205

REACTIONS (1)
  - DYSPNOEA [None]
